FAERS Safety Report 14325036 (Version 1)
Quarter: 2017Q4

REPORT INFORMATION
  Report Type: Spontaneous
  Country: US (occurrence: US)
  Receive Date: 20171226
  Receipt Date: 20171226
  Transmission Date: 20180321
  Serious: Yes (Other)
  Sender: FDA-Public Use
  Company Number: US-ASTRAZENECA-2017SF30190

PATIENT
  Age: 82 Year
  Sex: Male
  Weight: 73.5 kg

DRUGS (1)
  1. SYMBICORT [Suspect]
     Active Substance: BUDESONIDE\FORMOTEROL FUMARATE DIHYDRATE
     Indication: CHRONIC OBSTRUCTIVE PULMONARY DISEASE
     Dosage: 160 /4.5 MCG TWO TIMES A DAY
     Route: 055
     Dates: start: 2006

REACTIONS (8)
  - Medication residue present [Unknown]
  - Dyspnoea [Not Recovered/Not Resolved]
  - Insomnia [Unknown]
  - Condition aggravated [Unknown]
  - Hypoacusis [Unknown]
  - Intentional product misuse [Unknown]
  - Blindness [Not Recovered/Not Resolved]
  - Dry mouth [Unknown]

NARRATIVE: CASE EVENT DATE: 2007
